FAERS Safety Report 9989373 (Version 3)
Quarter: 2014Q2

REPORT INFORMATION
  Report Type: Spontaneous
  Country: US (occurrence: US)
  Receive Date: 20140310
  Receipt Date: 20140423
  Transmission Date: 20141212
  Serious: Yes (Other)
  Sender: FDA-Public Use
  Company Number: US-PFIZER INC-2013310785

PATIENT
  Age: 10 Year
  Sex: Female
  Weight: 32.2 kg

DRUGS (2)
  1. GENOTROPIN [Suspect]
     Indication: BODY HEIGHT BELOW NORMAL
     Dosage: 1.6 MG, 1X/DAY
     Route: 058
     Dates: start: 201309
  2. GENOTROPIN [Suspect]
     Dosage: UNK

REACTIONS (1)
  - Pneumonia [Unknown]
